FAERS Safety Report 8778934 (Version 1)
Quarter: 2012Q4

REPORT INFORMATION
  Report Type: 
  Country: FR (occurrence: FR)
  Receive Date: 20120910
  Receipt Date: 20120910
  Transmission Date: 20130627
  Serious: Yes (Hospitalization)
  Sender: FDA-Public Use
  Company Number: FR-ELI_LILLY_AND_COMPANY-FR201209000163

PATIENT
  Age: 59 Year
  Sex: Female

DRUGS (4)
  1. PROZAC [Suspect]
     Indication: DEPRESSION
     Dosage: 1 DF, qd
     Route: 048
  2. FLECAINE [Concomitant]
     Indication: ARRHYTHMIA
     Dosage: 100 mg, bid
  3. TENORMINE [Concomitant]
     Indication: ARRHYTHMIA
     Dosage: 100 mg, bid
  4. TAHOR [Concomitant]
     Indication: DYSLIPIDAEMIA
     Dosage: 40 mg, qd

REACTIONS (6)
  - Cerebral vasoconstriction [Recovered/Resolved]
  - C-reactive protein increased [Recovered/Resolved]
  - Varicella virus test positive [Unknown]
  - Chlamydia test positive [Unknown]
  - Fatigue [Unknown]
  - Malaise [Unknown]
